FAERS Safety Report 19413403 (Version 1)
Quarter: 2021Q2

REPORT INFORMATION
  Report Type: Spontaneous
  Country: FR (occurrence: FR)
  Receive Date: 20210615
  Receipt Date: 20210615
  Transmission Date: 20210717
  Serious: Yes (Other)
  Sender: FDA-Public Use
  Company Number: FR-AUROBINDO-AUR-APL-2021-024307

PATIENT
  Age: 22 Year
  Sex: Male

DRUGS (2)
  1. ALPRAZOLAM. [Suspect]
     Active Substance: ALPRAZOLAM
     Indication: PRODUCT USED FOR UNKNOWN INDICATION
     Dosage: UNK (UP TO 5 TABLETS PER DAY FOR THEN A FEW WEEKS)
     Route: 048
  2. ALCOHOL. [Suspect]
     Active Substance: ALCOHOL
     Indication: PRODUCT USED FOR UNKNOWN INDICATION
     Dosage: UNK (1 BOTTLE OF RUM EVERY 2 DAYS + 3?4 BEERS OF 50 CC AT 7 ? FOR SEVERAL YEARS)
     Route: 048

REACTIONS (1)
  - Drug use disorder [Not Recovered/Not Resolved]
